FAERS Safety Report 4839098-5 (Version None)
Quarter: 2005Q4

REPORT INFORMATION
  Report Type: 
  Country: None (occurrence: None)
  Receive Date: 20051129
  Receipt Date: 20050830
  Transmission Date: 20060501
  Serious: Yes (Death)
  Sender: FDA-Public Use
  Company Number: JP-JPN-A20052054

PATIENT
  Age: 13 Year
  Sex: Female

DRUGS (3)
  1. FLOLAN [Suspect]
     Indication: PULMONARY HYPERTENSION
     Route: 042
     Dates: start: 20011002, end: 20020117
  2. FUROSEMIDE [Concomitant]
     Indication: PULMONARY HYPERTENSION
     Dates: start: 20010825, end: 20020117
  3. SPIRONOLACTONE [Concomitant]
     Route: 048
     Dates: start: 20010825, end: 20020117

REACTIONS (5)
  - FATIGUE [None]
  - HAEMOPTYSIS [None]
  - LOSS OF CONSCIOUSNESS [None]
  - PULMONARY HAEMORRHAGE [None]
  - TACHYCARDIA [None]
